FAERS Safety Report 6142080-1 (Version None)
Quarter: 2009Q2

REPORT INFORMATION
  Report Type: 
  Country: None (occurrence: None)
  Receive Date: 20090402
  Receipt Date: 20090323
  Transmission Date: 20091009
  Serious: Yes (Hospitalization)
  Sender: FDA-Public Use
  Company Number: CA-ABBOTT-09P-028-0502523-00

PATIENT
  Sex: Female

DRUGS (14)
  1. HUMIRA [Suspect]
     Indication: CROHN'S DISEASE
     Route: 058
     Dates: start: 20080214
  2. HYDROCHLOROTHIAZIDE [Concomitant]
     Indication: HYPERTENSION
     Dates: start: 20060501
  3. DIANE 35 [Concomitant]
     Indication: POLYCYSTIC OVARIES
     Dates: start: 20040101
  4. METHOTREXATE [Concomitant]
     Indication: CROHN'S DISEASE
     Dates: start: 20070801
  5. PENTASA [Concomitant]
     Indication: CROHN'S DISEASE
     Dates: start: 19980101
  6. FERROUS SULFATE TAB [Concomitant]
     Indication: MINERAL SUPPLEMENTATION
     Dates: start: 20060701
  7. FOLIC ACID [Concomitant]
     Indication: VITAMIN SUPPLEMENTATION
     Dates: start: 20060701
  8. ATENOLOL [Concomitant]
     Indication: MIGRAINE PROPHYLAXIS
     Dates: start: 20080125
  9. PREDNISONE [Concomitant]
     Indication: ABDOMINAL PAIN
     Dates: start: 20080218, end: 20080225
  10. AMOXIL [Concomitant]
     Indication: PHARYNGITIS STREPTOCOCCAL
     Dates: start: 20081003, end: 20081010
  11. PEN V [Concomitant]
     Indication: PHARYNGITIS STREPTOCOCCAL
     Dates: start: 20081011, end: 20081020
  12. INFLUENZA VACCINE [Concomitant]
     Indication: INFLUENZA IMMUNISATION
     Dosage: 1 INJECTION
     Dates: start: 20081025, end: 20081025
  13. AMOXIL [Concomitant]
     Indication: OTITIS MEDIA
     Dates: start: 20081212, end: 20081222
  14. BIAXIN [Concomitant]
     Indication: OTITIS MEDIA
     Dates: start: 20081223, end: 20081231

REACTIONS (1)
  - INTESTINAL OBSTRUCTION [None]
